FAERS Safety Report 9616255 (Version 5)
Quarter: 2014Q2

REPORT INFORMATION
  Report Type: Spontaneous
  Country: JP (occurrence: JP)
  Receive Date: 20131011
  Receipt Date: 20140604
  Transmission Date: 20141212
  Serious: Yes (Life-Threatening, Other)
  Sender: FDA-Public Use
  Company Number: JP-OTSUKA-JP-2013-14357

PATIENT
  Age: 48 Year
  Sex: Male

DRUGS (17)
  1. SAMSCA [Suspect]
     Indication: CARDIAC FAILURE
     Dosage: 7.5 MG MILLIGRAM(S), DAILY DOSE
     Route: 048
     Dates: start: 20110928
  2. METGLUCO [Suspect]
     Indication: PRODUCT USED FOR UNKNOWN INDICATION
     Dosage: UNK
     Route: 048
     Dates: end: 20130718
  3. METGLUCO [Suspect]
     Dosage: 750 MG MILLIGRAM(S), DAILY DOSE
     Route: 048
     Dates: start: 20130719
  4. LASIX [Suspect]
     Indication: PRODUCT USED FOR UNKNOWN INDICATION
     Dosage: 60 MG MILLIGRAM(S), DAILY DOSE
     Route: 048
     Dates: start: 20110917
  5. ALDACTONE A [Suspect]
     Indication: PRODUCT USED FOR UNKNOWN INDICATION
     Dosage: 50 MG MILLIGRAM(S), DAILY DOSE
     Route: 048
     Dates: start: 20110917
  6. FLUITRAN [Suspect]
     Indication: PRODUCT USED FOR UNKNOWN INDICATION
     Dosage: 1 MG MILLIGRAM(S), DAILY DOSE
     Route: 048
     Dates: start: 20110917
  7. ARTIST [Concomitant]
     Dosage: 20 MG MILLIGRAM(S), DAILY DOSE
     Route: 048
  8. CRESTOR [Concomitant]
     Dosage: 2.5 MG MILLIGRAM(S), DAILY DOSE
     Route: 048
  9. PIMOBENDAN [Concomitant]
     Dosage: 2.5 MG MILLIGRAM(S), DAILY DOSE
     Route: 048
  10. ASPARA K [Concomitant]
     Dosage: 1800 MG MILLIGRAM(S), DAILY DOSE
     Route: 048
  11. WARFARIN K [Concomitant]
     Dosage: 4 MG MILLIGRAM(S), DAILY DOSE
     Route: 048
  12. OMEPRAL [Concomitant]
     Dosage: 20 MG MILLIGRAM(S), DAILY DOSE
     Route: 048
  13. RENIVACE [Concomitant]
     Dosage: 5 MG MILLIGRAM(S), DAILY DOSE
     Route: 048
  14. EQUA [Concomitant]
     Dosage: 100 MG MILLIGRAM(S), DAILY DOSE
     Route: 048
  15. AMARYL [Concomitant]
     Dosage: 0.5 MG MILLIGRAM(S), DAILY DOSE
     Route: 048
  16. FEBURIC [Concomitant]
     Dosage: 20 MG MILLIGRAM(S), DAILY DOSE
     Route: 048
     Dates: start: 20121102, end: 20130425
  17. FEBURIC [Concomitant]
     Dosage: 40 MG MILLIGRAM(S), DAILY DOSE
     Route: 048
     Dates: start: 20130426

REACTIONS (4)
  - Device malfunction [Recovered/Resolved]
  - Atrial fibrillation [Recovered/Resolved]
  - Hyponatraemia [Unknown]
  - Hypochloraemia [Recovered/Resolved]
